FAERS Safety Report 8472710 (Version 2)
Quarter: 2012Q4

REPORT INFORMATION
  Report Type: 
  Country: DE (occurrence: DE)
  Receive Date: 20120322
  Receipt Date: 20120910
  Transmission Date: 20130627
  Serious: Yes (Life-Threatening, Other)
  Sender: FDA-Public Use
  Company Number: DE-ASTRAZENECA-2012SE17696

PATIENT
  Age: 19580 Day
  Sex: Male
  Weight: 95 kg

DRUGS (1)
  1. BRILIQUE [Suspect]
     Indication: IN-STENT CORONARY ARTERY RESTENOSIS
     Route: 048
     Dates: start: 20120302

REACTIONS (2)
  - Thrombosis in device [Recovered/Resolved]
  - Acute myocardial infarction [Recovered/Resolved]
